FAERS Safety Report 6568437-2 (Version None)
Quarter: 2010Q1

REPORT INFORMATION
  Report Type: 
  Country: None (occurrence: None)
  Receive Date: 20100203
  Receipt Date: 20100128
  Transmission Date: 20100710
  Serious: Yes (Hospitalization)
  Sender: FDA-Public Use
  Company Number: A0770011A

PATIENT
  Age: 65 Year
  Sex: Male

DRUGS (9)
  1. LOVAZA [Suspect]
     Indication: BLOOD CHOLESTEROL INCREASED
     Dosage: 1G TWICE PER DAY
     Route: 048
     Dates: start: 20060101
  2. AVODART [Suspect]
     Indication: BENIGN PROSTATIC HYPERPLASIA
     Dosage: .5MG VARIABLE DOSE
     Route: 048
     Dates: start: 20080301
  3. CRESTOR [Concomitant]
  4. ALTACE [Concomitant]
  5. BABY ASPIRIN [Concomitant]
  6. VITAMIN D [Concomitant]
  7. WELCHOL [Concomitant]
  8. TERBINAFINE [Concomitant]
  9. NIASPAN [Concomitant]

REACTIONS (8)
  - ABDOMINAL DISCOMFORT [None]
  - BLADDER CATHETERISATION [None]
  - DYSPHONIA [None]
  - LOW DENSITY LIPOPROTEIN INCREASED [None]
  - MUSCLE STRAIN [None]
  - PROSTATIC HAEMORRHAGE [None]
  - THROMBOSIS [None]
  - URINARY TRACT OBSTRUCTION [None]
